FAERS Safety Report 9222465 (Version 1)
Quarter: 2013Q2

REPORT INFORMATION
  Report Type: Report from Study
  Country: US (occurrence: US)
  Receive Date: 20130410
  Receipt Date: 20130410
  Transmission Date: 20140414
  Serious: No
  Sender: FDA-Public Use
  Company Number: US-VERTEX PHARMACEUTICALS INC.-2013-004614

PATIENT
  Sex: Female
  Weight: 71.66 kg

DRUGS (11)
  1. VX-950 (TELAPREVIR) [Suspect]
     Indication: HEPATITIS C
     Dosage: 750 MG, TID
     Route: 048
  2. SYNTHROID [Concomitant]
     Dosage: 88 ?G, UNK
     Route: 048
  3. BUSPIRONE [Concomitant]
     Dosage: 5 MG, UNK
     Route: 048
  4. MULTIVITAMIN [Concomitant]
     Dosage: UNK
     Route: 048
  5. VITAMIN B COMPLEX [Concomitant]
     Route: 048
  6. CALCIUM [Concomitant]
     Route: 048
  7. VITAMIN D [Concomitant]
     Dosage: 2000 UNK, UNK
     Route: 048
  8. ESTER C [Concomitant]
     Route: 048
  9. FISH OIL [Concomitant]
     Route: 048
  10. FLUTICASONE [Concomitant]
     Dosage: 50 ?G, UNK
     Route: 048
  11. GARLIC [Concomitant]
     Dosage: 1000 MG, UNK
     Route: 048

REACTIONS (6)
  - Musculoskeletal pain [Unknown]
  - Decreased appetite [Unknown]
  - Fatigue [Unknown]
  - Anorectal discomfort [Unknown]
  - Rash pruritic [Unknown]
  - Nausea [Unknown]
